FAERS Safety Report 6238916-6 (Version None)
Quarter: 2009Q2

REPORT INFORMATION
  Report Type: 
  Country: None (occurrence: None)
  Receive Date: 20090622
  Receipt Date: 20090610
  Transmission Date: 20091009
  Serious: Yes (Death)
  Sender: FDA-Public Use
  Company Number: PE-PFIZER INC-2009220339

PATIENT
  Age: 90 Year

DRUGS (3)
  1. LIPITOR [Suspect]
     Indication: DYSLIPIDAEMIA
     Route: 048
     Dates: start: 20070924, end: 20090512
  2. OMEPRAZOL [Suspect]
     Indication: GASTRITIS
     Route: 048
     Dates: start: 20070101, end: 20090512
  3. FLONASE [Concomitant]
     Route: 045
     Dates: start: 20070101, end: 20090512

REACTIONS (1)
  - MYOCARDIAL INFARCTION [None]
